FAERS Safety Report 13503351 (Version 1)
Quarter: 2017Q2

REPORT INFORMATION
  Report Type: Spontaneous
  Country: US (occurrence: US)
  Receive Date: 20170502
  Receipt Date: 20170502
  Transmission Date: 20170830
  Serious: No
  Sender: FDA-Public Use
  Company Number: None

PATIENT
  Age: 69 Year
  Sex: Female
  Weight: 73.94 kg

DRUGS (15)
  1. DETROL/TOLTERODINE TARTRATE [Concomitant]
  2. VITAMIN D [Concomitant]
     Active Substance: CHOLECALCIFEROL
  3. COQ10 [Concomitant]
     Active Substance: UBIDECARENONE
  4. COQ10 [Concomitant]
     Active Substance: UBIDECARENONE
  5. BABY ASPIRIN [Concomitant]
     Active Substance: ASPIRIN
  6. CLONIDINE TRANSDERMAL SYSTEM [Suspect]
     Active Substance: CLONIDINE
     Indication: BLOOD PRESSURE MEASUREMENT
     Dosage: QUANITY - 1 PATCH PER WEEK?FREQUENCY - 1 PATCH PER WEEK?ROUTE - SKIN (PATCH)
  7. CLONIDINE PATCH [Concomitant]
     Active Substance: CLONIDINE
  8. ESCITALOPRAM [Concomitant]
     Active Substance: ESCITALOPRAM OXALATE
  9. RANITIDINE. [Concomitant]
     Active Substance: RANITIDINE
  10. FISH OIL [Concomitant]
     Active Substance: FISH OIL
  11. LISINOPRIL. [Concomitant]
     Active Substance: LISINOPRIL
  12. DEXILANT [Concomitant]
     Active Substance: DEXLANSOPRAZOLE
  13. ATORVASTATIN [Concomitant]
     Active Substance: ATORVASTATIN
  14. MULTI VITAMIN [Concomitant]
     Active Substance: VITAMINS
  15. VITAMIN C [Concomitant]
     Active Substance: ASCORBIC ACID

REACTIONS (7)
  - Application site pain [None]
  - Rash [None]
  - Product substitution issue [None]
  - Application site pruritus [None]
  - Product adhesion issue [None]
  - Hyperhidrosis [None]
  - Application site irritation [None]

NARRATIVE: CASE EVENT DATE: 2016
